FAERS Safety Report 20026753 (Version 3)
Quarter: 2021Q4

REPORT INFORMATION
  Report Type: Report from Study
  Country: ES (occurrence: ES)
  Receive Date: 20211102
  Receipt Date: 20211207
  Transmission Date: 20220303
  Serious: Yes (Other)
  Sender: FDA-Public Use
  Company Number: ES-ABBVIE-21K-144-4048598-00

PATIENT
  Age: 81 Year
  Sex: Male
  Weight: 50 kg

DRUGS (3)
  1. CARBIDOPA\LEVODOPA [Suspect]
     Active Substance: CARBIDOPA\LEVODOPA
     Indication: Parkinson^s disease
     Route: 050
     Dates: start: 20200714, end: 20210820
  2. CARBIDOPA\LEVODOPA [Suspect]
     Active Substance: CARBIDOPA\LEVODOPA
     Dosage: CONTINUOUS RATE INCREASED BY 0.1ML/H
     Route: 050
     Dates: start: 20210820, end: 20210823
  3. CARBIDOPA\LEVODOPA [Suspect]
     Active Substance: CARBIDOPA\LEVODOPA
     Dosage: CONTINUOUS DOSE INCREASED BY 0.2 ML/H
     Route: 050
     Dates: start: 20210823

REACTIONS (26)
  - Weight decreased [Recovering/Resolving]
  - Listless [Recovered/Resolved]
  - Muscle rigidity [Not Recovered/Not Resolved]
  - Decreased appetite [Not Recovered/Not Resolved]
  - Hypophagia [Not Recovered/Not Resolved]
  - Blood magnesium decreased [Recovering/Resolving]
  - Speech disorder [Not Recovered/Not Resolved]
  - Mobility decreased [Not Recovered/Not Resolved]
  - General physical health deterioration [Not Recovered/Not Resolved]
  - Fall [Recovered/Resolved]
  - Somnolence [Recovered/Resolved]
  - Asthenia [Not Recovered/Not Resolved]
  - On and off phenomenon [Not Recovered/Not Resolved]
  - Therapeutic product effect incomplete [Unknown]
  - Insomnia [Unknown]
  - Diarrhoea [Recovered/Resolved]
  - Malaise [Unknown]
  - Therapeutic product effect incomplete [Unknown]
  - Unevaluable event [Unknown]
  - Asthenia [Not Recovered/Not Resolved]
  - Pain [Not Recovered/Not Resolved]
  - Dyskinesia [Not Recovered/Not Resolved]
  - Disorientation [Not Recovered/Not Resolved]
  - Asthenia [Unknown]
  - Unevaluable event [Recovering/Resolving]
  - Dyskinesia [Unknown]

NARRATIVE: CASE EVENT DATE: 20210701
